FAERS Safety Report 16793338 (Version 3)
Quarter: 2019Q4

REPORT INFORMATION
  Report Type: Spontaneous
  Country: US (occurrence: US)
  Receive Date: 20190911
  Receipt Date: 20191011
  Transmission Date: 20200122
  Serious: No
  Sender: FDA-Public Use
  Company Number: US-009507513-1908USA011249

PATIENT
  Age: 73 Year
  Sex: Female

DRUGS (7)
  1. HYDROCHLOROTHIAZIDE (+) TRIAMTERENE [Concomitant]
     Active Substance: HYDROCHLOROTHIAZIDE\TRIAMTERENE
  2. FLONASE [Concomitant]
     Active Substance: FLUTICASONE PROPIONATE
  3. ASMANEX [Suspect]
     Active Substance: MOMETASONE FUROATE
     Dosage: UNIT #1, 1 PUFF EVERY DAY
     Route: 055
     Dates: start: 20190716
  4. CITALOPRAM HYDROBROMIDE. [Concomitant]
     Active Substance: CITALOPRAM HYDROBROMIDE
  5. ASMANEX [Suspect]
     Active Substance: MOMETASONE FUROATE
     Dosage: UNK
     Route: 055
     Dates: start: 20190828
  6. ATORVASTATIN CALCIUM. [Concomitant]
     Active Substance: ATORVASTATIN CALCIUM
  7. ASMANEX [Suspect]
     Active Substance: MOMETASONE FUROATE
     Indication: ASTHMA
     Dosage: UNIT #2, 1 PUFF EVERY DAY
     Route: 055
     Dates: start: 201906

REACTIONS (5)
  - Product quality issue [Not Recovered/Not Resolved]
  - Fatigue [Not Recovered/Not Resolved]
  - No adverse event [Unknown]
  - Incorrect dose administered [Unknown]
  - Poor quality device used [Unknown]

NARRATIVE: CASE EVENT DATE: 2019
